FAERS Safety Report 12332799 (Version 1)
Quarter: 2016Q2

REPORT INFORMATION
  Report Type: Spontaneous
  Country: US (occurrence: US)
  Receive Date: 20160504
  Receipt Date: 20160504
  Transmission Date: 20160815
  Serious: No
  Sender: FDA-Public Use
  Company Number: US-ROCHE-1654539

PATIENT
  Sex: Female

DRUGS (1)
  1. ESBRIET [Suspect]
     Active Substance: PIRFENIDONE
     Indication: IDIOPATHIC PULMONARY FIBROSIS
     Dosage: 267 MG PILLS; 3 PILLS, 3 TIMES A DAY
     Route: 048
     Dates: start: 201501, end: 201510

REACTIONS (2)
  - Drug dose omission [Unknown]
  - No adverse event [Unknown]
